FAERS Safety Report 5344407-7 (Version None)
Quarter: 2007Q2

REPORT INFORMATION
  Report Type: 
  Country: None (occurrence: None)
  Receive Date: 20070604
  Receipt Date: 20070521
  Transmission Date: 20071010
  Serious: Yes (Hospitalization, Disabling)
  Sender: FDA-Public Use
  Company Number: SE-NOVOPROD-259181

PATIENT
  Age: 21 Year
  Sex: Female
  Weight: 48 kg

DRUGS (3)
  1. NORDITROPIN SIMPLEXX [Suspect]
  2. GROWTROPIN II [Suspect]
     Dates: start: 20000905
  3. EVOREL                             /00045401/ [Concomitant]
     Dosage: 6.25 UG, QD
     Dates: start: 20020508

REACTIONS (1)
  - LEUKAEMIA RECURRENT [None]
